FAERS Safety Report 14174738 (Version 4)
Quarter: 2018Q2

REPORT INFORMATION
  Report Type: Report from Study
  Country: BE (occurrence: BE)
  Receive Date: 20171109
  Receipt Date: 20180517
  Transmission Date: 20180711
  Serious: Yes (Hospitalization)
  Sender: FDA-Public Use
  Company Number: BE-PFIZER INC-2017468778

PATIENT
  Age: 42 Year
  Sex: Female
  Weight: 56.5 kg

DRUGS (4)
  1. FOLAVIT [Concomitant]
     Active Substance: FOLIC ACID
     Indication: OSTEOPOROSIS PROPHYLAXIS
     Dosage: 4.4 MG, UNK
     Dates: start: 2012
  2. PERFUSALGAN [Concomitant]
     Active Substance: ACETAMINOPHEN
     Indication: ABDOMINAL PAIN UPPER
     Dosage: 1 G, UNK
     Route: 042
     Dates: start: 20171028, end: 20171029
  3. PANTOMED /01263204/ [Concomitant]
     Active Substance: PANTOPRAZOLE SODIUM
     Indication: GASTROOESOPHAGEAL REFLUX DISEASE
     Dosage: 40 MG, UNK
     Route: 048
     Dates: start: 2016
  4. CRIZOTINIB [Suspect]
     Active Substance: CRIZOTINIB
     Indication: NON-SMALL CELL LUNG CANCER
     Dosage: 1 DF, UNK
     Route: 048
     Dates: start: 20171018

REACTIONS (2)
  - Dyspepsia [Recovered/Resolved]
  - Gastric pH decreased [Recovered/Resolved]

NARRATIVE: CASE EVENT DATE: 20171028
